FAERS Safety Report 6139905-2 (Version None)
Quarter: 2009Q2

REPORT INFORMATION
  Report Type: 
  Country: None (occurrence: None)
  Receive Date: 20090401
  Receipt Date: 20090323
  Transmission Date: 20091009
  Serious: Yes (Other)
  Sender: FDA-Public Use
  Company Number: US-TEVA-189005USA

PATIENT
  Sex: Female
  Weight: 78 kg

DRUGS (11)
  1. ONXOL [Suspect]
     Indication: BREAST CANCER
     Route: 042
     Dates: start: 20080313, end: 20080320
  2. SUNITINIB MALATE [Suspect]
     Indication: BREAST CANCER
     Route: 048
     Dates: start: 20080313, end: 20080327
  3. ZOLPIDEM TARTRATE [Concomitant]
     Dates: start: 20030701
  4. TRAMADOL HCL [Concomitant]
     Dates: start: 20080201
  5. PROCHLORPERAZINE EDISYLATE [Concomitant]
     Dates: start: 20080313
  6. LORAZEPAM [Concomitant]
     Dates: start: 20030701
  7. IBUPROFEN [Concomitant]
     Dates: start: 20030101
  8. FENTANYL-25 [Concomitant]
     Dates: start: 20080301
  9. DEXAMETHASONE TAB [Concomitant]
     Dates: start: 20080312
  10. CYCLOBENZAPRINE HCL [Concomitant]
     Dates: start: 20070701
  11. ZOLEDRONIC ACID [Concomitant]
     Dates: start: 20080214

REACTIONS (1)
  - CHOLECYSTITIS [None]
